FAERS Safety Report 4991900-2 (Version None)
Quarter: 2006Q2

REPORT INFORMATION
  Report Type: 
  Country: None (occurrence: None)
  Receive Date: 20060504
  Receipt Date: 20051031
  Transmission Date: 20061013
  Serious: Yes (Hospitalization)
  Sender: FDA-Public Use
  Company Number: US-MERCK-0511USA00118

PATIENT
  Age: 42 Year
  Sex: Male
  Weight: 82 kg

DRUGS (11)
  1. VIOXX [Suspect]
     Indication: ARTHRITIS
     Route: 048
     Dates: start: 20030305
  2. VIOXX [Suspect]
     Route: 048
     Dates: start: 20030519, end: 20030921
  3. ASPIRIN [Concomitant]
     Indication: CARDIAC DISORDER
     Route: 065
  4. ATENOLOL [Concomitant]
     Indication: CARDIAC DISORDER
     Route: 065
  5. ATENOLOL [Concomitant]
     Indication: HYPERTENSION
     Route: 065
  6. NEXIUM [Concomitant]
     Indication: GASTROOESOPHAGEAL REFLUX DISEASE
     Route: 065
  7. ARTHROTEC [Concomitant]
     Indication: ARTHRITIS
     Route: 065
  8. NORVASC [Concomitant]
     Route: 065
  9. PLAVIX [Concomitant]
     Route: 065
  10. LIPITOR [Concomitant]
     Route: 065
  11. NAPROXEN [Concomitant]
     Route: 065

REACTIONS (19)
  - ANGINA UNSTABLE [None]
  - ARTHROPOD STING [None]
  - BACK INJURY [None]
  - CHEST PAIN [None]
  - CORONARY ARTERY STENOSIS [None]
  - DEPRESSION [None]
  - FALL [None]
  - FOREIGN BODY SENSATION IN EYES [None]
  - GASTROENTERITIS VIRAL [None]
  - GASTROOESOPHAGEAL REFLUX DISEASE [None]
  - HIATUS HERNIA [None]
  - INTERVERTEBRAL DISC DEGENERATION [None]
  - LIMB INJURY [None]
  - MUSCLE STRAIN [None]
  - MUSCULOSKELETAL CHEST PAIN [None]
  - MYOCARDIAL INFARCTION [None]
  - NASOPHARYNGITIS [None]
  - PAIN [None]
  - VISION BLURRED [None]
